FAERS Safety Report 15434627 (Version 1)
Quarter: 2018Q3

REPORT INFORMATION
  Report Type: Report from Study
  Country: CA (occurrence: CA)
  Receive Date: 20180927
  Receipt Date: 20180927
  Transmission Date: 20181010
  Serious: Yes (Other)
  Sender: FDA-Public Use
  Company Number: CA-JNJFOC-20180930026

PATIENT
  Age: 10 Year
  Sex: Male
  Weight: 63.8 kg

DRUGS (2)
  1. REMICADE [Suspect]
     Active Substance: INFLIXIMAB
     Indication: CROHN^S DISEASE
     Dosage: STRENGTH = 100 MG
     Route: 042
     Dates: start: 20131128
  2. METHOTREXATE. [Concomitant]
     Active Substance: METHOTREXATE
     Dosage: STRENGTH = 12.5 MG
     Route: 048

REACTIONS (3)
  - Off label use [Unknown]
  - Product use issue [Unknown]
  - Nasal abscess [Unknown]

NARRATIVE: CASE EVENT DATE: 20131128
